FAERS Safety Report 9273029 (Version 5)
Quarter: 2015Q2

REPORT INFORMATION
  Report Type: Spontaneous
  Country: US (occurrence: US)
  Receive Date: 20130506
  Receipt Date: 20150520
  Transmission Date: 20150821
  Serious: No
  Sender: FDA-Public Use
  Company Number: US-009507513-1305USA002096

PATIENT
  Sex: Male
  Weight: 112.93 kg

DRUGS (2)
  1. PROPECIA [Suspect]
     Active Substance: FINASTERIDE
     Indication: ALOPECIA
     Dosage: 1 MG, QD
     Route: 048
     Dates: start: 200707, end: 20121230
  2. FINASTERIDE. [Suspect]
     Active Substance: FINASTERIDE
     Indication: ALOPECIA
     Dosage: 1 MG, QD
     Route: 048
     Dates: start: 20130129, end: 20150406

REACTIONS (17)
  - Spinal osteoarthritis [Unknown]
  - Spondylolisthesis [Unknown]
  - Intervertebral disc protrusion [Unknown]
  - Dysuria [Unknown]
  - Depression [Not Recovered/Not Resolved]
  - Sexual dysfunction [Not Recovered/Not Resolved]
  - Prostatomegaly [Unknown]
  - Anxiety [Not Recovered/Not Resolved]
  - Facial bones fracture [Unknown]
  - Erectile dysfunction [Not Recovered/Not Resolved]
  - Gastrooesophageal reflux disease [Unknown]
  - Drug ineffective [Unknown]
  - Conjunctivitis [Unknown]
  - Haematospermia [Unknown]
  - Libido decreased [Not Recovered/Not Resolved]
  - Cognitive disorder [Not Recovered/Not Resolved]
  - Nasal septum deviation [Unknown]

NARRATIVE: CASE EVENT DATE: 200702
